FAERS Safety Report 4787142-6 (Version None)
Quarter: 2005Q4

REPORT INFORMATION
  Report Type: 
  Country: None (occurrence: None)
  Receive Date: 20051004
  Receipt Date: 20050817
  Transmission Date: 20060501
  Serious: Yes (Death, Other)
  Sender: FDA-Public Use
  Company Number: JP-MERCK-0508USA03431

PATIENT
  Age: 47 Year
  Sex: Male
  Weight: 50 kg

DRUGS (11)
  1. PRIMAXIN [Suspect]
     Indication: PNEUMONIA PRIMARY ATYPICAL
     Route: 042
     Dates: start: 20030820, end: 20030825
  2. PRIMAXIN [Suspect]
     Indication: PNEUMONIA FUNGAL
     Route: 042
     Dates: start: 20030820, end: 20030825
  3. CIPROFLOXACIN HYDROCHLORIDE [Concomitant]
     Indication: PNEUMONIA PRIMARY ATYPICAL
     Route: 048
     Dates: start: 20030820, end: 20030825
  4. CIPROFLOXACIN HYDROCHLORIDE [Concomitant]
     Indication: PNEUMONIA FUNGAL
     Route: 048
     Dates: start: 20030820, end: 20030825
  5. MICAFUNGIN SODIUM [Concomitant]
     Indication: PNEUMONIA PRIMARY ATYPICAL
     Route: 042
     Dates: start: 20030820, end: 20030901
  6. MICAFUNGIN SODIUM [Concomitant]
     Indication: PNEUMONIA FUNGAL
     Route: 042
     Dates: start: 20030820, end: 20030901
  7. FOY [Concomitant]
     Indication: DISSEMINATED INTRAVASCULAR COAGULATION
     Route: 042
     Dates: start: 20030820, end: 20030901
  8. CLINDAMYCIN PHOSPHATE [Concomitant]
     Indication: PNEUMONIA
     Route: 042
     Dates: start: 20030820, end: 20030820
  9. NEUTROGIN [Concomitant]
     Indication: NEUTROPHIL COUNT DECREASED
     Route: 042
     Dates: start: 20030820, end: 20030901
  10. MIRACLID [Concomitant]
     Indication: SHOCK
     Route: 042
     Dates: start: 20030820, end: 20030826
  11. PENTAMIDINE ISETIONATE [Concomitant]
     Indication: PNEUMOCYSTIS JIROVECI PNEUMONIA
     Route: 042
     Dates: start: 20030822, end: 20030823

REACTIONS (7)
  - ACUTE MYELOID LEUKAEMIA [None]
  - ALVEOLAR PROTEINOSIS [None]
  - DRUG INEFFECTIVE [None]
  - HYPERKALAEMIA [None]
  - JAUNDICE [None]
  - RENAL FAILURE ACUTE [None]
  - VENTRICULAR FIBRILLATION [None]
